FAERS Safety Report 4830595-5 (Version None)
Quarter: 2005Q4

REPORT INFORMATION
  Report Type: 
  Country: None (occurrence: None)
  Receive Date: 20051117
  Receipt Date: 20050610
  Transmission Date: 20060501
  Serious: Yes (Hospitalization)
  Sender: FDA-Public Use
  Company Number: 200512059FR

PATIENT
  Age: 52 Year
  Sex: Female

DRUGS (1)
  1. LOVENOX [Suspect]
     Indication: PROPHYLAXIS
     Route: 058
     Dates: start: 20050401, end: 20050101

REACTIONS (2)
  - ECZEMA [None]
  - TYPE IV HYPERSENSITIVITY REACTION [None]
